FAERS Safety Report 21950313 (Version 1)
Quarter: 2023Q1

REPORT INFORMATION
  Report Type: Spontaneous
  Country: GB (occurrence: GB)
  Receive Date: 20230203
  Receipt Date: 20230203
  Transmission Date: 20230417
  Serious: Yes (Death)
  Sender: FDA-Public Use
  Company Number: None

PATIENT
  Age: 43 Year
  Sex: Female

DRUGS (1)
  1. SIMVASTATIN [Suspect]
     Active Substance: SIMVASTATIN
     Dosage: 20 MG ONCE A DAY, AT BEDTIME ORAL
     Dates: start: 20230125, end: 20230125

REACTIONS (1)
  - Myalgia [Fatal]
